FAERS Safety Report 10494944 (Version 1)
Quarter: 2014Q3

REPORT INFORMATION
  Report Type: Spontaneous
  Country: US (occurrence: None)
  Receive Date: 20140815
  Receipt Date: 20140815
  Transmission Date: 20150326
  Serious: Yes (Other)
  Sender: FDA-Public Use
  Company Number: ADR-2013-01786

PATIENT
  Age: 45 Year
  Sex: Female

DRUGS (2)
  1. BACLOFEN INTRATHECAL [Suspect]
     Active Substance: BACLOFEN
     Indication: POST LAMINECTOMY SYNDROME
  2. HYDROMORPHONE [Suspect]
     Active Substance: HYDROMORPHONE

REACTIONS (11)
  - Headache [None]
  - Underdose [None]
  - Malaise [None]
  - Overdose [None]
  - Muscle spasms [None]
  - Nausea [None]
  - Pain [None]
  - Vomiting [None]
  - Drug withdrawal syndrome [None]
  - Tremor [None]
  - Chills [None]
